FAERS Safety Report 8482538-3 (Version None)
Quarter: 2012Q3

REPORT INFORMATION
  Report Type: 
  Country: None (occurrence: None)
  Receive Date: 20120702
  Receipt Date: 20120622
  Transmission Date: 20120928
  Serious: Yes (Other)
  Sender: FDA-Public Use
  Company Number: US-JNJFOC-20120612394

PATIENT
  Sex: Male
  Weight: 70.31 kg

DRUGS (2)
  1. REMICADE [Suspect]
     Indication: CROHN'S DISEASE
     Route: 042
     Dates: start: 20100901
  2. CALCIUM [Concomitant]
     Indication: NUTRITIONAL SUPPORT
     Route: 048

REACTIONS (4)
  - CHEST PAIN [None]
  - HEART RATE INCREASED [None]
  - RASH [None]
  - INFLAMMATION [None]
